FAERS Safety Report 8515492 (Version 2)
Quarter: 2013Q2

REPORT INFORMATION
  Report Type: Spontaneous
  Country: GB (occurrence: GB)
  Receive Date: 20120417
  Receipt Date: 20130619
  Transmission Date: 20140414
  Serious: Yes (Life-Threatening, Hospitalization)
  Sender: FDA-Public Use
  Company Number: GB-PFIZER INC-2012092111

PATIENT
  Age: 94 Year
  Sex: Male

DRUGS (19)
  1. PIPERACILLIN/TAZOBACTAM [Suspect]
     Indication: LOWER RESPIRATORY TRACT INFECTION
     Dosage: 4.5 G ONCE EVERY 8 HOURS
     Route: 042
     Dates: start: 20120320, end: 20120326
  2. PIPERACILLIN/TAZOBACTAM [Suspect]
     Indication: SEPSIS
  3. PHENYTOIN [Concomitant]
     Dosage: 150 MG, 1X/DAY
  4. CALCICHEW-D3 [Concomitant]
     Dosage: 1 DF, 2X/DAY
  5. LANSOPRAZOLE [Concomitant]
     Dosage: 30 MG, 1X/DAY
  6. FLUDROCORTISONE [Concomitant]
     Dosage: 50 UG, 1X/DAY
  7. FUROSEMIDE [Concomitant]
     Dosage: 20 MG, 1X/DAY
  8. LOPERAMIDE [Concomitant]
     Dosage: UNK
  9. PARACETAMOL [Concomitant]
     Dosage: UNK
  10. LACTULOSE [Concomitant]
     Dosage: UNK
  11. IPRATROPIUM [Concomitant]
     Dosage: 1 DF, 4X/DAY
     Route: 055
     Dates: start: 20120320, end: 20120325
  12. SALBUTAMOL [Concomitant]
     Dosage: 1 DF, 4X/DAY
     Route: 055
     Dates: start: 20120320, end: 20120325
  13. BENZYLPENICILLIN [Concomitant]
     Dosage: 2 DOSE FORMS (UNIT DOSE)
     Route: 042
     Dates: start: 20120319, end: 20120320
  14. CLARITHROMYCIN [Concomitant]
     Dosage: 2 DOSE FORMS (UNIT DOSE)
     Route: 042
     Dates: start: 20120319, end: 20120320
  15. GENTAMICIN [Concomitant]
     Dosage: 1 DOSE FORM (UNIT DOSE)
     Dates: start: 20120320, end: 20120320
  16. ENOXAPARIN [Concomitant]
     Dosage: 20 MG, 1X/DAY
     Dates: start: 20120320, end: 20120322
  17. PHOSPHATE-SANDOZ [Concomitant]
     Dosage: UNK
     Route: 048
     Dates: start: 20120324, end: 20120330
  18. OMEPRAZOLE [Concomitant]
     Dosage: 40 MG (UNIT DOSE)
     Dates: start: 20120320, end: 20120320
  19. HYDROCORTISONE [Concomitant]
     Dosage: 100 MG (UNIT DOSE)
     Dates: start: 20120320, end: 20120320

REACTIONS (3)
  - Leukopenia [Recovered/Resolved]
  - Neutropenia [Recovered/Resolved]
  - Platelet count decreased [Recovered/Resolved]
